FAERS Safety Report 5127144-3 (Version None)
Quarter: 2006Q4

REPORT INFORMATION
  Report Type: 
  Country: None (occurrence: None)
  Receive Date: 20061013
  Receipt Date: 20061002
  Transmission Date: 20070319
  Serious: Yes (Other)
  Sender: FDA-Public Use
  Company Number: FI-PURDUE-GBR_2006_0002508

PATIENT
  Age: 45 Year
  Sex: Female

DRUGS (5)
  1. PALLADONE [Suspect]
     Indication: NEURALGIA
     Dosage: 24 MG, BID
     Route: 048
     Dates: start: 20060901, end: 20060928
  2. NEURONTIN [Concomitant]
     Indication: NEURALGIA
     Dosage: 1200 MG, TID
     Route: 048
     Dates: start: 20010412
  3. TRIPTYL [Concomitant]
     Indication: NEURALGIA
     Dosage: 50 MG, DAILY
     Route: 048
     Dates: start: 20010412
  4. VALTREX [Concomitant]
     Indication: ANTIVIRAL PROPHYLAXIS
     Dosage: 1 GRAM, BID
     Route: 048
     Dates: start: 20011009
  5. MOVICOL [Concomitant]
     Indication: BOWEL MOVEMENT IRREGULARITY
     Dosage: 1 SACHET, BID
     Route: 048
     Dates: start: 20030210

REACTIONS (1)
  - RETROGRADE AMNESIA [None]
